FAERS Safety Report 5836426-9 (Version None)
Quarter: 2008Q3

REPORT INFORMATION
  Report Type: 
  Country: None (occurrence: None)
  Receive Date: 20080807
  Receipt Date: 20080728
  Transmission Date: 20090109
  Serious: Yes (Hospitalization)
  Sender: FDA-Public Use
  Company Number: PHBS2008US05255

PATIENT
  Age: 67 Year
  Sex: Female

DRUGS (6)
  1. FAMCICLOVIR [Suspect]
     Indication: HERPES ZOSTER
     Dosage: 500 MG, TID
  2. GLYBURIDE [Concomitant]
     Dosage: 6 MG/H, BID
  3. METFORMIN HCL [Concomitant]
     Dosage: 500 MG, BID
  4. LEVOTHYROXINE SODIUM [Concomitant]
     Dosage: 50 UG, QD
  5. CETIRIZINE HCL [Concomitant]
     Dosage: 10 MG, QD
  6. MULTI-VITAMINS [Concomitant]

REACTIONS (13)
  - BLISTER [None]
  - BURNING SENSATION [None]
  - ESCHAR [None]
  - FIBRIN [None]
  - LEUKOCYTOCLASTIC VASCULITIS [None]
  - PALPABLE PURPURA [None]
  - PIGMENTATION DISORDER [None]
  - PRURITUS [None]
  - RASH PAPULAR [None]
  - SKIN LESION [None]
  - SKIN NECROSIS [None]
  - ULCER [None]
  - WHITE BLOOD CELL COUNT INCREASED [None]
